FAERS Safety Report 18367014 (Version 1)
Quarter: 2020Q4

REPORT INFORMATION
  Report Type: Spontaneous
  Country: US (occurrence: US)
  Receive Date: 20201009
  Receipt Date: 20201009
  Transmission Date: 20210114
  Serious: No
  Sender: FDA-Public Use
  Company Number: US-SA-2020SA145429

PATIENT

DRUGS (3)
  1. LANTUS [Suspect]
     Active Substance: INSULIN GLARGINE
     Indication: TYPE 2 DIABETES MELLITUS
     Dosage: 22 IU, QD
     Route: 065
     Dates: start: 2019
  2. LANTUS [Suspect]
     Active Substance: INSULIN GLARGINE
     Dosage: 25 IU, QD
  3. LANTUS [Suspect]
     Active Substance: INSULIN GLARGINE
     Dosage: NOT GETTING HER FULL DOSE
     Route: 065

REACTIONS (2)
  - Wrong technique in device usage process [Unknown]
  - Visual impairment [Unknown]
